FAERS Safety Report 8221535-X (Version None)
Quarter: 2012Q1

REPORT INFORMATION
  Report Type: 
  Country: None (occurrence: None)
  Receive Date: 20120315
  Receipt Date: 20120308
  Transmission Date: 20120608
  Serious: Yes (Other)
  Sender: FDA-Public Use
  Company Number: DSA_55039_2012

PATIENT
  Sex: Female
  Weight: 52.6173 kg

DRUGS (5)
  1. LEXAPRO [Concomitant]
  2. CLONAZEPAM [Concomitant]
  3. XENAZINE [Suspect]
     Indication: DYSKINESIA
     Dosage: (12.5 MG BID ORAL)
     Route: 048
     Dates: start: 20111228
  4. ASPIRIN [Concomitant]
  5. BOTOX [Concomitant]

REACTIONS (6)
  - DYSKINESIA [None]
  - ANXIETY [None]
  - PALPITATIONS [None]
  - WEIGHT DECREASED [None]
  - SALIVARY HYPERSECRETION [None]
  - CONDITION AGGRAVATED [None]
